FAERS Safety Report 9668874 (Version 2)
Quarter: 2013Q4

REPORT INFORMATION
  Report Type: Report from Study
  Country: FR (occurrence: FR)
  Receive Date: 20131105
  Receipt Date: 20131105
  Transmission Date: 20140711
  Serious: Yes (Hospitalization, Other)
  Sender: FDA-Public Use
  Company Number: PHHY2013FR048103

PATIENT
  Age: 61 Year
  Sex: Male

DRUGS (5)
  1. MYCOPHENOLIC ACID [Suspect]
     Indication: RENAL TRANSPLANT
     Dosage: 2160 MG, UNK
     Route: 048
     Dates: start: 20130329, end: 20130717
  2. BACTRIM [Suspect]
     Indication: PROPHYLAXIS
     Dosage: UNK
     Dates: start: 20130329, end: 20130717
  3. ROVALCYTE [Suspect]
     Indication: CYTOMEGALOVIRUS INFECTION
     Dosage: 450 MG, UNK
     Dates: start: 20130329, end: 20130620
  4. PROGRAF [Suspect]
     Indication: RENAL TRANSPLANT
     Dosage: 3 MG, QD
     Dates: start: 20130329
  5. CORTANCYL [Suspect]
     Indication: RENAL TRANSPLANT
     Dosage: 5 MG, QD
     Dates: start: 20130329

REACTIONS (7)
  - Lung disorder [Recovered/Resolved]
  - Leukopenia [Recovered/Resolved]
  - Pyrexia [Recovered/Resolved]
  - Agranulocytosis [Unknown]
  - Viral infection [Unknown]
  - Cough [Unknown]
  - Thrombocytopenia [Not Recovered/Not Resolved]
